FAERS Safety Report 19494686 (Version 2)
Quarter: 2022Q1

REPORT INFORMATION
  Report Type: Spontaneous
  Country: AT (occurrence: AT)
  Receive Date: 20210705
  Receipt Date: 20220131
  Transmission Date: 20220423
  Serious: Yes (Death, Other)
  Sender: FDA-Public Use
  Company Number: AT-ANIPHARMA-2021-AT-000015

PATIENT
  Sex: Female

DRUGS (13)
  1. ANASTROZOLE [Suspect]
     Active Substance: ANASTROZOLE
     Indication: Breast cancer metastatic
     Route: 048
     Dates: start: 201911
  2. DENOSUMAB [Concomitant]
     Active Substance: DENOSUMAB
     Route: 065
     Dates: start: 202007
  3. BEVACIZUMAB [Concomitant]
     Active Substance: BEVACIZUMAB
     Route: 065
  4. TENOFOVIR [Concomitant]
     Active Substance: TENOFOVIR
     Route: 065
     Dates: start: 201911
  5. ZOLADEX [Concomitant]
     Active Substance: GOSERELIN ACETATE
     Route: 065
     Dates: start: 201911, end: 202011
  6. FULVESTRANT [Suspect]
     Active Substance: FULVESTRANT
     Route: 065
     Dates: start: 202012, end: 202104
  7. VIREAD [Concomitant]
     Active Substance: TENOFOVIR DISOPROXIL FUMARATE
     Route: 065
  8. GOSERELIN [Concomitant]
     Active Substance: GOSERELIN
     Route: 065
     Dates: start: 201911
  9. VITAMINS WITH MINERALS [Suspect]
     Active Substance: MINERALS\VITAMINS
     Route: 065
     Dates: start: 202007
  10. RIBOCICLIB [Suspect]
     Active Substance: RIBOCICLIB
     Dosage: 200 MG UNK
     Route: 065
     Dates: start: 201911
  11. CAPECITABINE [Suspect]
     Active Substance: CAPECITABINE
     Route: 048
  12. PIQRAY [Suspect]
     Active Substance: ALPELISIB
     Dosage: 150 MG UNK
     Route: 065
     Dates: start: 202012, end: 202104
  13. FUROSEMIDE\SPIRONOLACTONE [Concomitant]
     Active Substance: FUROSEMIDE\SPIRONOLACTONE
     Dosage: QD (20/50 MG)
     Route: 065
     Dates: start: 202012

REACTIONS (10)
  - Metastases to liver [Unknown]
  - Liver function test increased [Unknown]
  - Hepatic cirrhosis [Unknown]
  - Ascites [Unknown]
  - Metastasis [Fatal]
  - General physical health deterioration [Unknown]
  - Jaundice [Unknown]
  - Confusional state [Fatal]
  - Blood glucose fluctuation [Unknown]
  - Metastases to bone [Unknown]

NARRATIVE: CASE EVENT DATE: 20200701
